FAERS Safety Report 17119964 (Version 1)
Quarter: 2019Q4

REPORT INFORMATION
  Report Type: Spontaneous
  Country: US (occurrence: US)
  Receive Date: 20191113
  Receipt Date: 20191113
  Transmission Date: 20200122
  Serious: Yes (Hospitalization)
  Sender: FDA-Public Use
  Company Number: None

PATIENT
  Sex: Female

DRUGS (4)
  1. DOLFETILIDE [Concomitant]
  2. AMOX/K CLAV [Concomitant]
     Active Substance: AMOXICILLIN\CLAVULANATE POTASSIUM
  3. HUMIRA [Concomitant]
     Active Substance: ADALIMUMAB
  4. FORTEO [Suspect]
     Active Substance: TERIPARATIDE
     Indication: PSORIATIC ARTHROPATHY
     Route: 058
     Dates: start: 20190115

REACTIONS (1)
  - Dyspnoea [None]
